FAERS Safety Report 6816975-7 (Version None)
Quarter: 2010Q3

REPORT INFORMATION
  Report Type: 
  Country: None (occurrence: None)
  Receive Date: 20100706
  Receipt Date: 20100623
  Transmission Date: 20110219
  Serious: Yes (Other)
  Sender: FDA-Public Use
  Company Number: PHHY2010IE03369

PATIENT
  Age: 55 Year
  Sex: Male

DRUGS (2)
  1. RASILEZ [Suspect]
     Indication: HYPERTENSION
     Dosage: 150 MG, QD
     Route: 048
     Dates: start: 20100107, end: 20100123
  2. GLUCOPHAGE [Concomitant]
     Dosage: 1000 MG
     Route: 065

REACTIONS (6)
  - BLOOD CREATININE INCREASED [None]
  - MICROALBUMINURIA [None]
  - NEPHROPATHY [None]
  - NEPHROTIC SYNDROME [None]
  - PROTEIN TOTAL INCREASED [None]
  - PROTEINURIA [None]
